FAERS Safety Report 6679699-5 (Version None)
Quarter: 2010Q2

REPORT INFORMATION
  Report Type: 
  Country: None (occurrence: None)
  Receive Date: 20100413
  Receipt Date: 20100405
  Transmission Date: 20101027
  Serious: Yes (Hospitalization)
  Sender: FDA-Public Use
  Company Number: US-CEPHALON-2010001585

PATIENT
  Sex: Female

DRUGS (24)
  1. AMRIX [Suspect]
     Indication: NECK PAIN
     Route: 048
     Dates: start: 20100315, end: 20100315
  2. CALCIUM [Concomitant]
  3. TRAMADOL HCL [Concomitant]
  4. CEREFOLIN [Concomitant]
  5. NEXIUM [Concomitant]
  6. VESICARE [Concomitant]
  7. EVOXAC [Concomitant]
  8. FLUOROMETHOLONE [Concomitant]
  9. ARICEPT [Concomitant]
  10. MIRAPEX [Concomitant]
  11. VITAMIN D [Concomitant]
  12. TYLENOL-500 [Concomitant]
  13. NAMENDA [Concomitant]
  14. ASPIRIN [Concomitant]
  15. VITAMIN D [Concomitant]
  16. CONDROITIN [Concomitant]
  17. MULTI-VITAMINS [Concomitant]
  18. FISH OIL [Concomitant]
  19. AMOXIL/CLAVULANATE [Concomitant]
  20. FLUOROMETHOLONE [Concomitant]
  21. KETOCONAZOLE [Concomitant]
  22. BACTROBA [Concomitant]
  23. HYDROCORTISONE [Concomitant]
  24. METOCLOPROMIDE [Concomitant]

REACTIONS (7)
  - AGITATION [None]
  - BRADYPHRENIA [None]
  - DYSARTHRIA [None]
  - FEELING DRUNK [None]
  - HALLUCINATION [None]
  - IMPATIENCE [None]
  - THINKING ABNORMAL [None]
